FAERS Safety Report 24459633 (Version 1)
Quarter: 2024Q4

REPORT INFORMATION
  Report Type: Report from Study
  Country: US (occurrence: US)
  Receive Date: 20241018
  Receipt Date: 20241018
  Transmission Date: 20250115
  Serious: No
  Sender: ROCHE
  Company Number: US-ROCHE-3555810

PATIENT
  Age: 45 Year
  Sex: Female

DRUGS (3)
  1. RITUXAN [Suspect]
     Active Substance: RITUXIMAB
     Indication: Systemic lupus erythematosus
     Dosage: MORE DOSAGE INFORMATION IS 500 MG SINGLE-USE VIAL
     Route: 041
     Dates: start: 20240115
  2. RITUXAN [Suspect]
     Active Substance: RITUXIMAB
     Route: 041
     Dates: start: 20240426
  3. ACETAMINOPHEN [Concomitant]
     Active Substance: ACETAMINOPHEN
     Indication: Systemic lupus erythematosus
     Route: 048
     Dates: start: 20240426

REACTIONS (2)
  - Off label use [Unknown]
  - No adverse event [Unknown]
